FAERS Safety Report 15106450 (Version 1)
Quarter: 2018Q3

REPORT INFORMATION
  Report Type: Spontaneous
  Country: CN (occurrence: CN)
  Receive Date: 20180704
  Receipt Date: 20180704
  Transmission Date: 20181010
  Serious: Yes (Other)
  Sender: FDA-Public Use
  Company Number: CN-ROCHE-2148470

PATIENT
  Age: 64 Year
  Sex: Male
  Weight: 65 kg

DRUGS (2)
  1. XELODA [Suspect]
     Active Substance: CAPECITABINE
     Indication: GASTRIC CANCER
     Route: 048
     Dates: start: 20180328
  2. OXALIPLATIN. [Suspect]
     Active Substance: OXALIPLATIN
     Indication: GASTRIC CANCER
     Route: 041
     Dates: start: 20180328

REACTIONS (2)
  - Liver injury [Unknown]
  - Hepatic enzyme abnormal [Recovered/Resolved]

NARRATIVE: CASE EVENT DATE: 20180401
